FAERS Safety Report 12516878 (Version 1)
Quarter: 2016Q2

REPORT INFORMATION
  Report Type: Report from Study
  Country: US (occurrence: US)
  Receive Date: 20160630
  Receipt Date: 20160630
  Transmission Date: 20160815
  Serious: Yes (Other)
  Sender: FDA-Public Use
  Company Number: US-BIOGEN-2015BI013890

PATIENT
  Age: 55 Year
  Sex: Female

DRUGS (3)
  1. TYSABRI [Suspect]
     Active Substance: NATALIZUMAB
     Indication: MULTIPLE SCLEROSIS
     Dosage: INFUSED OVER 1 HOUR
     Route: 042
     Dates: start: 20070905, end: 20090428
  2. TYSABRI [Suspect]
     Active Substance: NATALIZUMAB
     Dosage: INFUSED OVER 1 HOUR
     Route: 042
     Dates: start: 20120401, end: 20130101
  3. TYSABRI [Suspect]
     Active Substance: NATALIZUMAB
     Dosage: INFUSED OVER 1 HOUR
     Route: 042
     Dates: start: 20130319, end: 20141210

REACTIONS (3)
  - Memory impairment [Recovered/Resolved]
  - Ill-defined disorder [Not Recovered/Not Resolved]
  - Non-Hodgkin^s lymphoma [Recovered/Resolved]

NARRATIVE: CASE EVENT DATE: 20141216
